FAERS Safety Report 4707324-9 (Version None)
Quarter: 2005Q3

REPORT INFORMATION
  Report Type: 
  Country: None (occurrence: None)
  Receive Date: 20050701
  Receipt Date: 20050621
  Transmission Date: 20060218
  Serious: Yes (Hospitalization, Other)
  Sender: FDA-Public Use
  Company Number: 2005-05-2435

PATIENT
  Sex: Female

DRUGS (5)
  1. CLARITIN-D [Suspect]
     Indication: COUGH
     Dosage: 1 DRAGERA/12HR ORAL
     Route: 048
     Dates: start: 20050528, end: 20050528
  2. CLARITIN-D [Suspect]
     Indication: INFLUENZA
     Dosage: 1 DRAGERA/12HR ORAL
     Route: 048
     Dates: start: 20050528, end: 20050528
  3. PROPRANOLOL [Concomitant]
  4. HYDROCHLOROTHIAZIDE [Concomitant]
  5. CAPTOPRIL [Concomitant]

REACTIONS (3)
  - CONFUSIONAL STATE [None]
  - INSOMNIA [None]
  - LOSS OF CONSCIOUSNESS [None]
